FAERS Safety Report 18664957 (Version 1)
Quarter: 2020Q4

REPORT INFORMATION
  Report Type: Spontaneous
  Country: US (occurrence: US)
  Receive Date: 20201225
  Receipt Date: 20201225
  Transmission Date: 20210114
  Serious: No
  Sender: FDA-Public Use
  Company Number: US-TAKEDA-2020TUS058286

PATIENT
  Age: 67 Year
  Sex: Female
  Weight: 86.18 kg

DRUGS (15)
  1. LOSARTAN AND HYDROCHLOROTHIAZIDE [Concomitant]
     Active Substance: HYDROCHLOROTHIAZIDE\LOSARTAN POTASSIUM
  2. ISONIAZID. [Concomitant]
     Active Substance: ISONIAZID
  3. SODIUM CHLORIDE. [Concomitant]
     Active Substance: SODIUM CHLORIDE
  4. ACETAMINOPHEN. [Concomitant]
     Active Substance: ACETAMINOPHEN
  5. HEPARIN [Concomitant]
     Active Substance: HEPARIN SODIUM
  6. PREDNISONE. [Concomitant]
     Active Substance: PREDNISONE
  7. DILTIAZEM. [Concomitant]
     Active Substance: DILTIAZEM
  8. BISACODYL. [Concomitant]
     Active Substance: BISACODYL
  9. VITAMIN B6 [Concomitant]
     Active Substance: PYRIDOXINE HYDROCHLORIDE
  10. VITAMIN D2 [Concomitant]
     Active Substance: ERGOCALCIFEROL
  11. EPINEPHRINE. [Concomitant]
     Active Substance: EPINEPHRINE
  12. LMX4 [Concomitant]
     Active Substance: LIDOCAINE
  13. XARELTO [Concomitant]
     Active Substance: RIVAROXABAN
  14. GAMMAGARD [Suspect]
     Active Substance: HUMAN IMMUNOGLOBULIN G
     Indication: POLYMYOSITIS
     Dosage: 400 MILLIGRAM/KILOGRAM, DIVIDE 3 DAYS Q3WEEKS
     Route: 042
     Dates: start: 20201019
  15. DIPHENHYDRAMINE. [Concomitant]
     Active Substance: DIPHENHYDRAMINE

REACTIONS (1)
  - Peripheral swelling [Unknown]

NARRATIVE: CASE EVENT DATE: 20201121
